FAERS Safety Report 23924771 (Version 1)
Quarter: 2024Q2

REPORT INFORMATION
  Report Type: Spontaneous
  Country: US (occurrence: US)
  Receive Date: 20240531
  Receipt Date: 20240531
  Transmission Date: 20240716
  Serious: No
  Sender: FDA-Public Use
  Company Number: US-MYLANLABS-2024M1044713

PATIENT
  Sex: Female

DRUGS (2)
  1. ESTRADIOL TRANSDERMAL SYSTEM [Suspect]
     Active Substance: ESTRADIOL
     Indication: Menopausal symptoms
     Dosage: 0.025 MILLIGRAM, QD (TWICE WEEKLY)
     Route: 062
     Dates: start: 20240222
  2. PROGESTERONE [Concomitant]
     Active Substance: PROGESTERONE
     Indication: Menopausal symptoms
     Dosage: 100 MILLIGRAM, QD

REACTIONS (1)
  - Therapeutic product effect incomplete [Unknown]
